FAERS Safety Report 21818791 (Version 1)
Quarter: 2023Q1

REPORT INFORMATION
  Report Type: Spontaneous
  Country: IN (occurrence: IN)
  Receive Date: 20230104
  Receipt Date: 20230104
  Transmission Date: 20230417
  Serious: Yes (Hospitalization, Disabling)
  Sender: FDA-Public Use
  Company Number: IN-MYLANLABS-2022M1142145

PATIENT
  Age: 56 Year
  Sex: Female

DRUGS (1)
  1. VORICONAZOLE [Suspect]
     Active Substance: VORICONAZOLE
     Indication: Keratitis fungal
     Dosage: UNK

REACTIONS (1)
  - Therapy non-responder [Unknown]
